FAERS Safety Report 7933520-3 (Version None)
Quarter: 2011Q4

REPORT INFORMATION
  Report Type: 
  Country: None (occurrence: None)
  Receive Date: 20111122
  Receipt Date: 20111117
  Transmission Date: 20120403
  Serious: Yes (Hospitalization)
  Sender: FDA-Public Use
  Company Number: US-SANOFI-AVENTIS-2011SA075777

PATIENT
  Sex: Male

DRUGS (4)
  1. NOVOLIN 70/30 [Concomitant]
  2. LANTUS [Suspect]
     Dosage: STARTED ON 10 UNITS AND GO UP BY 1 UNIT UNITL FASTING SUGAR WAS 100 U , HE GOT UP TO 40 U A DAY
     Route: 058
     Dates: start: 20110201
  3. APIDRA [Suspect]
     Route: 058
  4. SOLOSTAR [Suspect]
     Dates: start: 20110201

REACTIONS (3)
  - HYPERSENSITIVITY [None]
  - CARDIAC DISORDER [None]
  - LOSS OF CONSCIOUSNESS [None]
